FAERS Safety Report 14868858 (Version 1)
Quarter: 2018Q2

REPORT INFORMATION
  Report Type: Spontaneous
  Country: US (occurrence: US)
  Receive Date: 20180423
  Receipt Date: 20180423
  Transmission Date: 20180711
  Serious: No
  Sender: FDA-Public Use
  Company Number: None

PATIENT

DRUGS (2)
  1. SODIIUM BICARBONATE 8.4% 50ML VIAL [Suspect]
     Active Substance: SODIUM BICARBONATE
  2. XYLOCAINE [Suspect]
     Active Substance: LIDOCAINE HYDROCHLORIDE
     Indication: LOCAL ANAESTHESIA
     Dosage: INJ/SUB-Q PRIOR TO IV?CATHETER INSERTION?
     Route: 058

REACTIONS (3)
  - Injection site discolouration [None]
  - Injection site erythema [None]
  - Skin exfoliation [None]

NARRATIVE: CASE EVENT DATE: 20180409
